FAERS Safety Report 8496874-8 (Version None)
Quarter: 2012Q3

REPORT INFORMATION
  Report Type: 
  Country: None (occurrence: None)
  Receive Date: 20120709
  Receipt Date: 20120626
  Transmission Date: 20120928
  Serious: Yes (Hospitalization, Other)
  Sender: FDA-Public Use
  Company Number: FI-ELI_LILLY_AND_COMPANY-FI201206008756

PATIENT
  Sex: Female
  Weight: 38 kg

DRUGS (4)
  1. CALCIUM CARBONATE [Concomitant]
     Indication: MEDICAL DIET
     Dosage: UNK, UNKNOWN
     Route: 065
  2. ACETAMINOPHEN [Concomitant]
     Indication: PAIN
     Dosage: UNK, QD
     Route: 065
  3. MAGNESIUM SULFATE [Concomitant]
     Indication: MUSCLE SPASMS
     Dosage: UNK, UNKNOWN
     Route: 065
  4. FORTEO [Suspect]
     Indication: OSTEOPOROSIS
     Dosage: 20 UG, QD
     Route: 065
     Dates: start: 20100820

REACTIONS (3)
  - LIMB OPERATION [None]
  - PNEUMONIA [None]
  - LABORATORY TEST ABNORMAL [None]
